FAERS Safety Report 8190124-8 (Version None)
Quarter: 2012Q1

REPORT INFORMATION
  Report Type: 
  Country: None (occurrence: None)
  Receive Date: 20120305
  Receipt Date: 20120224
  Transmission Date: 20120608
  Serious: Yes (Hospitalization)
  Sender: FDA-Public Use
  Company Number: 2012SP011104

PATIENT
  Age: 32 Year
  Sex: Female
  Weight: 85.7298 kg

DRUGS (1)
  1. SAPHRIS [Suspect]
     Indication: BIPOLAR DISORDER
     Dosage: 1 DF;QD
     Dates: start: 20111009, end: 20111014

REACTIONS (10)
  - DYSSTASIA [None]
  - DIZZINESS [None]
  - HOT FLUSH [None]
  - CONFUSIONAL STATE [None]
  - DISORIENTATION [None]
  - THIRST [None]
  - HANGOVER [None]
  - CONSTIPATION [None]
  - TREMOR [None]
  - FEELING COLD [None]
